FAERS Safety Report 7168903-5 (Version None)
Quarter: 2010Q4

REPORT INFORMATION
  Report Type: 
  Country: None (occurrence: None)
  Receive Date: 20101216
  Receipt Date: 20100125
  Transmission Date: 20110411
  Serious: Yes (Other)
  Sender: FDA-Public Use
  Company Number: US-AMGEN-KDL388478

PATIENT

DRUGS (4)
  1. ENBREL [Suspect]
     Indication: PSORIATIC ARTHROPATHY
     Dosage: 50 MG, QWK
     Route: 058
     Dates: start: 20001217
  2. ENBREL [Suspect]
     Indication: PSORIASIS
  3. ROFECOXIB [Concomitant]
  4. ADALIMUMAB [Concomitant]

REACTIONS (6)
  - ARTHRALGIA [None]
  - DRUG INEFFECTIVE [None]
  - HYPOAESTHESIA [None]
  - MYALGIA [None]
  - MYOCARDIAL INFARCTION [None]
  - PSORIASIS [None]
